FAERS Safety Report 5004937-4 (Version None)
Quarter: 2006Q1

REPORT INFORMATION
  Report Type: 
  Country: None (occurrence: None)
  Receive Date: 20060321
  Receipt Date: 20060217
  Transmission Date: 20060701
  Serious: No
  Sender: FDA-Public Use
  Company Number: YPA20050644

PATIENT
  Age: 78 Year
  Sex: Male
  Weight: 85.5 kg

DRUGS (9)
  1. VESICARE [Suspect]
     Indication: POLLAKIURIA
     Dosage: SEE IMAGE
     Route: 048
     Dates: start: 20051213, end: 20051220
  2. VESICARE [Suspect]
     Indication: POLLAKIURIA
     Dosage: SEE IMAGE
     Route: 048
     Dates: start: 20051221, end: 20051229
  3. RYTHMOL [Concomitant]
  4. ZOCOR [Concomitant]
  5. LISINOPRIL [Concomitant]
  6. HYTRIN [Concomitant]
  7. FLUNISOLIDE (FLUNISOLIDE) [Concomitant]
  8. ASPIRIN [Concomitant]
  9. SANCTURA [Concomitant]

REACTIONS (1)
  - DRUG INEFFECTIVE [None]
